FAERS Safety Report 7361466-0 (Version None)
Quarter: 2011Q1

REPORT INFORMATION
  Report Type: 
  Country: None (occurrence: None)
  Receive Date: 20110309
  Receipt Date: 20110224
  Transmission Date: 20110831
  Serious: Yes (Other)
  Sender: FDA-Public Use
  Company Number: 019401

PATIENT
  Sex: Female
  Weight: 77.1 kg

DRUGS (4)
  1. METHOTREXATE [Concomitant]
  2. CIMZIA [Suspect]
     Indication: RHEUMATOID ARTHRITIS
     Dosage: 200 MG 1X2 WEEKS, SUBCUTANEOUS
     Route: 058
     Dates: start: 20100408
  3. FOLIC ACID [Concomitant]
  4. NAPROXEN [Concomitant]

REACTIONS (1)
  - KNEE ARTHROPLASTY [None]
